FAERS Safety Report 14829026 (Version 1)
Quarter: 2018Q2

REPORT INFORMATION
  Report Type: Spontaneous
  Country: BR (occurrence: BR)
  Receive Date: 20180430
  Receipt Date: 20180430
  Transmission Date: 20180711
  Serious: Yes (Other)
  Sender: FDA-Public Use
  Company Number: BR-009507513-1804BRA009836

PATIENT
  Age: 66 Year
  Sex: Female
  Weight: 74 kg

DRUGS (2)
  1. EUTHYROX [Concomitant]
     Active Substance: LEVOTHYROXINE SODIUM
     Indication: THYROID DISORDER
     Dosage: 75 MG (1 TABLET) PER DAY
     Dates: start: 2007
  2. JANUMET [Suspect]
     Active Substance: METFORMIN HYDROCHLORIDE\SITAGLIPTIN PHOSPHATE
     Indication: TYPE 2 DIABETES MELLITUS
     Dosage: 1 TABLET (50/1000MG) TWICE DAILY
     Route: 048
     Dates: start: 2007

REACTIONS (3)
  - Breast cancer recurrent [Unknown]
  - Pain in extremity [Not Recovered/Not Resolved]
  - Collagen disorder [Unknown]

NARRATIVE: CASE EVENT DATE: 2012
